FAERS Safety Report 8258887-0 (Version None)
Quarter: 2012Q2

REPORT INFORMATION
  Report Type: 
  Country: None (occurrence: None)
  Receive Date: 20120404
  Receipt Date: 20120320
  Transmission Date: 20120825
  Serious: Yes (Other)
  Sender: FDA-Public Use
  Company Number: BR-ROCHE-1051022

PATIENT

DRUGS (1)
  1. AVASTIN [Suspect]
     Indication: BREAST CANCER

REACTIONS (1)
  - HEPATIC FAILURE [None]
